FAERS Safety Report 22010481 (Version 3)
Quarter: 2024Q2

REPORT INFORMATION
  Report Type: Spontaneous
  Country: US (occurrence: US)
  Receive Date: 20230220
  Receipt Date: 20240522
  Transmission Date: 20240716
  Serious: No
  Sender: FDA-Public Use
  Company Number: US-APOTEX-2023AP002620

PATIENT
  Sex: Male

DRUGS (4)
  1. IPRATROPIUM BROMIDE [Suspect]
     Active Substance: IPRATROPIUM BROMIDE\IPRATROPIUM BROMIDE ANHYDROUS
     Indication: Rhinorrhoea
     Dosage: 4 DOSAGE FORM (2 SPRAYS IN EACH NOSTRIL 2 TO 3 TIMES A DAY)
     Route: 045
  2. IPRATROPIUM BROMIDE [Suspect]
     Active Substance: IPRATROPIUM BROMIDE\IPRATROPIUM BROMIDE ANHYDROUS
     Indication: Multiple allergies
     Dosage: 4 DOSAGE FORM (2 SPRAYS IN EACH NOSTRIL 2 TO 3 TIMES A DAY)
     Route: 045
     Dates: start: 20230109
  3. AZELASTINE HYDROCHLORIDE [Concomitant]
     Active Substance: AZELASTINE HYDROCHLORIDE
     Indication: Multiple allergies
     Dosage: 4 DOSAGE FORM, BID (2 SPRAY IN EACH NOSTRIL)
     Route: 045
  4. TRIAMCINOLONE [Concomitant]
     Active Substance: TRIAMCINOLONE
     Indication: Multiple allergies
     Dosage: 4 DOSAGE FORM, BID (2 SPRAY IN EACH NOSTRIL)
     Route: 045

REACTIONS (4)
  - Product delivery mechanism issue [Unknown]
  - Product use issue [Unknown]
  - Product dose omission issue [Unknown]
  - No adverse event [Unknown]
